FAERS Safety Report 8018220-6 (Version None)
Quarter: 2011Q4

REPORT INFORMATION
  Report Type: 
  Country: None (occurrence: None)
  Receive Date: 20111227
  Receipt Date: 20111215
  Transmission Date: 20120403
  Serious: Yes (Hospitalization)
  Sender: FDA-Public Use
  Company Number: 2010SGN00079

PATIENT
  Age: 51 Year
  Sex: Male
  Weight: 129 kg

DRUGS (11)
  1. DACARBAZINE [Suspect]
     Indication: HODGKIN'S DISEASE
     Dosage: 375 MG/M2, Q14D, INTRAVENOUS
     Route: 042
     Dates: start: 20100423, end: 20100702
  2. ASPIRIN [Concomitant]
  3. NEUPOGEN [Concomitant]
  4. BLEOMYCIN SULFATE [Suspect]
     Indication: HODGKIN'S DISEASE
     Dosage: 10 UNITS/MF, Q14D, INTRAVENOUS
     Route: 042
     Dates: start: 20100423, end: 20100702
  5. CLARITIN [Concomitant]
  6. VINBLASTINE SULFATE [Suspect]
     Indication: HODGKIN'S DISEASE
     Dosage: 6 MG/M2, Q14D, INTRAVENOUS
     Route: 042
     Dates: start: 20100423, end: 20100702
  7. POTASSIUM (POTASSIUM CHLORIDE) [Concomitant]
  8. SGN-35 (CAC10-VCMMAE) INJECTION [Suspect]
     Indication: HODGKIN'S DISEASE
     Dosage: 0.9 MG/KG, Q14D, INTRAVENOUS
     Route: 042
     Dates: start: 20100423, end: 20100618
  9. DOXORUBICIN HCL [Suspect]
     Indication: HODGKIN'S DISEASE
     Dosage: 25 MG/M2, Q14D, INTRAVENOUS
     Route: 042
     Dates: start: 20100423, end: 20100702
  10. LISINOPRIL HYDROCHLORTHIAZID (HYDROCHLOROTHIAZIDE, LISINOPRIL) [Concomitant]
  11. ACETAMINOPHEN [Concomitant]

REACTIONS (8)
  - DIZZINESS [None]
  - FEBRILE NEUTROPENIA [None]
  - DIARRHOEA [None]
  - INAPPROPRIATE ANTIDIURETIC HORMONE SECRETION [None]
  - DRUG DOSE OMISSION [None]
  - HYPONATRAEMIA [None]
  - DEHYDRATION [None]
  - DYSPNOEA [None]
